FAERS Safety Report 14078869 (Version 1)
Quarter: 2017Q4

REPORT INFORMATION
  Report Type: Spontaneous
  Country: IE (occurrence: IE)
  Receive Date: 20171012
  Receipt Date: 20171012
  Transmission Date: 20180321
  Serious: Yes (Other)
  Sender: FDA-Public Use
  Company Number: PHHY2017IE149917

PATIENT
  Sex: Male

DRUGS (1)
  1. STALEVO [Suspect]
     Active Substance: CARBIDOPA\ENTACAPONE\LEVODOPA
     Indication: PRODUCT USED FOR UNKNOWN INDICATION
     Dosage: 5 DF, QD
     Route: 065
     Dates: start: 20170603

REACTIONS (9)
  - Myalgia [Recovered/Resolved]
  - Spinal pain [Unknown]
  - Musculoskeletal pain [Recovered/Resolved]
  - Groin pain [Unknown]
  - Back pain [Unknown]
  - Musculoskeletal injury [Unknown]
  - Blood creatine phosphokinase increased [Unknown]
  - Nerve compression [Unknown]
  - Gait disturbance [Unknown]
